FAERS Safety Report 11201144 (Version 2)
Quarter: 2019Q4

REPORT INFORMATION
  Report Type: Report from Study
  Country: RS (occurrence: RS)
  Receive Date: 20150619
  Receipt Date: 20191209
  Transmission Date: 20200122
  Serious: Yes (Death, Other)
  Sender: FDA-Public Use
  Company Number: RS-ROCHE-GNE283664

PATIENT

DRUGS (6)
  1. CLOPIDOGREL [Suspect]
     Active Substance: CLOPIDOGREL BISULFATE
     Indication: ACUTE MYOCARDIAL INFARCTION
     Dosage: INITIAL DOSE OF 300 MG  (SUBJECTS OVER 80 KG RECEIVED 450 MG), FOLLOWED BY 75 MG DAILY FOR AT LEAST
     Route: 065
  2. ENOXAPARIN [Suspect]
     Active Substance: ENOXAPARIN
     Indication: ACUTE MYOCARDIAL INFARCTION
     Route: 040
  3. ACETYLSALICYLIC ACID [Suspect]
     Active Substance: ASPIRIN
     Route: 065
  4. ENOXAPARIN [Suspect]
     Active Substance: ENOXAPARIN
     Route: 058
  5. ALTEPLASE. [Suspect]
     Active Substance: ALTEPLASE
     Indication: ACUTE MYOCARDIAL INFARCTION
     Dosage: 50 MG INFUSION OVER 30 MINUTES AND 35 MG INFUSION OVER 60 MINUTES
     Route: 040
  6. ACETYLSALICYLIC ACID [Suspect]
     Active Substance: ASPIRIN
     Indication: ACUTE MYOCARDIAL INFARCTION
     Dosage: 300 MG IF NOT TAKEN BEFORE BY THE PATIENT AND 100 MG IF USED BEFORE), FOLLOWED BY 100 MG DAILY ONWAR
     Route: 065

REACTIONS (3)
  - Death [Fatal]
  - Haemorrhage [Recovered/Resolved]
  - Hypotension [Unknown]
